FAERS Safety Report 25184397 (Version 1)
Quarter: 2025Q2

REPORT INFORMATION
  Report Type: Spontaneous
  Country: DE (occurrence: DE)
  Receive Date: 20250410
  Receipt Date: 20250410
  Transmission Date: 20250716
  Serious: Yes (Hospitalization, Other)
  Sender: ORGANON
  Company Number: DE-EMB-M202306317-2

PATIENT
  Sex: Male
  Weight: 3.61 kg

DRUGS (7)
  1. MIRTAZAPINE [Suspect]
     Active Substance: MIRTAZAPINE
     Indication: Sleep disorder
     Dosage: 15 MILLIGRAM, QD
     Route: 064
     Dates: start: 202306, end: 202404
  2. LITHIUM [Suspect]
     Active Substance: LITHIUM
     Indication: Borderline personality disorder
     Dosage: DOSAGE INCREASED DURING PREGNANCY, AT LEAST UNTIL GW 4 ONLY 225 MG/D
     Route: 064
     Dates: start: 202306, end: 202404
  3. BUPROPION [Suspect]
     Active Substance: BUPROPION
     Indication: Borderline personality disorder
     Dosage: 150 MILLIGRAM, QD
     Route: 064
     Dates: start: 202306, end: 202404
  4. SERTRALINE [Suspect]
     Active Substance: SERTRALINE HYDROCHLORIDE
     Indication: Borderline personality disorder
     Dosage: 150 MILLIGRAM, QD
     Route: 064
     Dates: start: 202306, end: 202404
  5. QUETIAPINE [Suspect]
     Active Substance: QUETIAPINE
     Indication: Borderline personality disorder
     Dosage: 25 MILLIGRAM, QD
     Route: 064
     Dates: start: 202306, end: 202404
  6. LEVOTHYROXINE SODIUM [Concomitant]
     Active Substance: LEVOTHYROXINE SODIUM
     Indication: Hypothyroidism
     Dosage: 150-175 ?G/D
     Route: 064
     Dates: start: 202306, end: 202404
  7. INSULIN NOS [Concomitant]
     Active Substance: INSULIN NOS
     Indication: Gestational diabetes
     Route: 064

REACTIONS (6)
  - Drug withdrawal syndrome neonatal [Recovered/Resolved]
  - Agitation neonatal [Recovered/Resolved]
  - Temperature regulation disorder [Recovered/Resolved]
  - Neonatal tachypnoea [Recovered/Resolved]
  - Foetal exposure during pregnancy [Unknown]
  - Product use in unapproved indication [Unknown]

NARRATIVE: CASE EVENT DATE: 20240401
